FAERS Safety Report 16011879 (Version 2)
Quarter: 2019Q1

REPORT INFORMATION
  Report Type: Spontaneous
  Country: NZ (occurrence: NZ)
  Receive Date: 20190227
  Receipt Date: 20190319
  Transmission Date: 20190418
  Serious: Yes (Hospitalization)
  Sender: FDA-Public Use
  Company Number: NZ-ELI_LILLY_AND_COMPANY-NZ201902010783

PATIENT
  Sex: Female

DRUGS (1)
  1. ZYPREXA RELPREVV [Suspect]
     Active Substance: OLANZAPINE PAMOATE
     Indication: PRODUCT USED FOR UNKNOWN INDICATION
     Dosage: UNK UNK, UNKNOWN
     Route: 030

REACTIONS (6)
  - Pyrexia [Recovered/Resolved]
  - Sedation [Recovered/Resolved]
  - Respiratory distress [Recovered/Resolved]
  - Agitation [Recovered/Resolved]
  - Malaise [Recovered/Resolved]
  - Post-injection delirium sedation syndrome [Recovered/Resolved]

NARRATIVE: CASE EVENT DATE: 201812
